FAERS Safety Report 13850549 (Version 1)
Quarter: 2017Q3

REPORT INFORMATION
  Report Type: Spontaneous
  Country: JP (occurrence: JP)
  Receive Date: 20170809
  Receipt Date: 20170809
  Transmission Date: 20171127
  Serious: Yes (Other)
  Sender: FDA-Public Use
  Company Number: JP-HQ SPECIALTY-JP-2017INT000257

PATIENT
  Age: 36 Year
  Sex: Female

DRUGS (7)
  1. ROCURONIUM [Concomitant]
     Active Substance: ROCURONIUM BROMIDE
     Indication: SEDATIVE THERAPY
     Dosage: UNK
  2. METHIMAZOLE. [Concomitant]
     Active Substance: METHIMAZOLE
     Indication: HYPERTHYROIDISM
     Dosage: 90 MG, QD
     Route: 048
  3. MAGNESIUM SULFATE IN DEXTROSE [Suspect]
     Active Substance: MAGNESIUM SULFATE
     Dosage: 1.6 G/H
     Route: 065
  4. RITODRINE [Suspect]
     Active Substance: RITODRINE
     Dosage: 42 ?G/MIN
     Route: 065
  5. PROPOFOL. [Concomitant]
     Active Substance: PROPOFOL
     Indication: SEDATIVE THERAPY
     Dosage: UNK
  6. MAGNESIUM SULFATE IN DEXTROSE [Suspect]
     Active Substance: MAGNESIUM SULFATE
     Indication: PREMATURE DELIVERY
     Dosage: 1.1, G/H
     Route: 065
  7. RITODRINE [Suspect]
     Active Substance: RITODRINE
     Indication: PREMATURE DELIVERY
     Dosage: 50 ?G/MIN
     Route: 065

REACTIONS (7)
  - Acute respiratory failure [Recovered/Resolved]
  - Panic disorder [Recovered/Resolved]
  - Cardiac failure congestive [Recovered/Resolved]
  - Amniotic cavity infection [Unknown]
  - Thyrotoxic crisis [Recovered/Resolved]
  - Pulmonary oedema [Recovered/Resolved]
  - Pleural effusion [Recovered/Resolved]
